FAERS Safety Report 6959114-4 (Version None)
Quarter: 2010Q3

REPORT INFORMATION
  Report Type: 
  Country: None (occurrence: None)
  Receive Date: 20100831
  Receipt Date: 20100816
  Transmission Date: 20110219
  Serious: Yes (Death)
  Sender: FDA-Public Use
  Company Number: US-GENENTECH-305710

PATIENT
  Age: 57 Year
  Sex: Male

DRUGS (7)
  1. RITUXIMAB [Suspect]
     Indication: EPSTEIN-BARR VIRUS INFECTION
     Dosage: 375 MG/M2, 1/WEEK
     Route: 065
  2. MYCOPHENOLATE MOFETIL [Suspect]
     Indication: IMMUNOSUPPRESSION
     Dosage: 1 G, BID
     Route: 065
  3. GANCICLOVIR [Suspect]
     Indication: EPSTEIN-BARR VIRUS INFECTION
     Dosage: UNK
     Route: 065
  4. PREDNISONE [Suspect]
     Indication: IMMUNOSUPPRESSION
     Dosage: 5 MG, QAM
     Route: 065
  5. TACROLIMUS [Suspect]
     Indication: IMMUNOSUPPRESSION
     Dosage: 1 MG, BID
     Route: 065
  6. ORTHOCLONE OKT3 [Suspect]
     Indication: TRANSPLANT REJECTION
     Dosage: UNK
     Route: 065
  7. ORTHOCLONE OKT3 [Suspect]
     Dosage: UNK
     Route: 065

REACTIONS (4)
  - EPSTEIN-BARR VIRUS ASSOCIATED LYMPHOPROLIFERATIVE DISORDER [None]
  - RENAL FAILURE [None]
  - RESPIRATORY FAILURE [None]
  - TRANSPLANT REJECTION [None]
